FAERS Safety Report 9362873 (Version 3)
Quarter: 2014Q1

REPORT INFORMATION
  Report Type: Report from Study
  Country: NL (occurrence: NL)
  Receive Date: 20130624
  Receipt Date: 20140313
  Transmission Date: 20141002
  Serious: Yes (Death, Hospitalization)
  Sender: FDA-Public Use
  Company Number: NL-ROCHE-1240321

PATIENT
  Age: 71 Year
  Sex: Male
  Weight: 73.09 kg

DRUGS (19)
  1. RANIBIZUMAB [Suspect]
     Indication: RETINAL NEOVASCULARISATION
     Route: 065
     Dates: start: 20110321
  2. RANIBIZUMAB [Suspect]
     Route: 065
     Dates: start: 20110502
  3. RANIBIZUMAB [Suspect]
     Route: 065
     Dates: start: 20110530
  4. RANIBIZUMAB [Suspect]
     Route: 065
     Dates: start: 20110718
  5. RANIBIZUMAB [Suspect]
     Route: 065
     Dates: start: 20110829
  6. RANIBIZUMAB [Suspect]
     Route: 065
     Dates: start: 20120116
  7. RANIBIZUMAB [Suspect]
     Route: 065
     Dates: start: 20120213
  8. RANIBIZUMAB [Suspect]
     Route: 065
     Dates: start: 20120529
  9. RANIBIZUMAB [Suspect]
     Route: 065
     Dates: start: 20120709
  10. RANIBIZUMAB [Suspect]
     Route: 065
     Dates: start: 20120824
  11. RANIBIZUMAB [Suspect]
     Route: 065
     Dates: start: 20120924
  12. RANIBIZUMAB [Suspect]
     Route: 065
     Dates: start: 20121030
  13. RANIBIZUMAB [Suspect]
     Route: 065
     Dates: start: 20121210
  14. RANIBIZUMAB [Suspect]
     Route: 065
     Dates: start: 20130305, end: 20130305
  15. MS CONTIN [Concomitant]
     Dosage: 120-180 MG
     Route: 065
     Dates: start: 20130321
  16. FENTANYL [Concomitant]
     Route: 065
     Dates: start: 20130429
  17. FENTANYL [Concomitant]
     Dosage: 100 MCG/HR
     Route: 065
     Dates: start: 20130429
  18. ZOPICLON [Concomitant]
     Route: 065
     Dates: start: 2011
  19. HALDOL [Concomitant]
     Route: 065
     Dates: start: 20121223

REACTIONS (4)
  - Colon cancer metastatic [Fatal]
  - Constipation [Recovered/Resolved with Sequelae]
  - Confusional state [Recovered/Resolved with Sequelae]
  - Arthralgia [Recovered/Resolved with Sequelae]
